FAERS Safety Report 7001042-2 (Version None)
Quarter: 2010Q3

REPORT INFORMATION
  Report Type: 
  Country: None (occurrence: None)
  Receive Date: 20100920
  Receipt Date: 20070710
  Transmission Date: 20110219
  Serious: Yes (Disabling)
  Sender: FDA-Public Use
  Company Number: US-ASTRAZENECA-2006UW22414

PATIENT
  Age: 53 Year
  Sex: Male
  Weight: 121.6 kg

DRUGS (11)
  1. SEROQUEL [Suspect]
     Indication: DEPRESSION
     Dosage: 25 - 200 MG
     Route: 048
     Dates: start: 20030106
  2. SEROQUEL [Suspect]
     Indication: PSYCHOTIC DISORDER
     Dosage: 25 - 200 MG
     Route: 048
     Dates: start: 20030106
  3. SEROQUEL [Suspect]
     Indication: SLEEP DISORDER
     Dosage: 25 - 200 MG
     Route: 048
     Dates: start: 20030106
  4. SEROQUEL [Suspect]
     Route: 048
     Dates: start: 20031103
  5. SEROQUEL [Suspect]
     Route: 048
     Dates: start: 20031103
  6. SEROQUEL [Suspect]
     Route: 048
     Dates: start: 20031103
  7. LITHIUM [Concomitant]
  8. TRAZODONE HCL [Concomitant]
     Dosage: 50 - 100 MG AT NIGHT
     Route: 048
     Dates: start: 20030106
  9. METOPROLOL [Concomitant]
     Dosage: 50 MG 1/2 TABLET TWO TIMES A DAY
     Route: 048
     Dates: start: 20040106
  10. INDOMETHACIN LA [Concomitant]
     Dates: start: 20040106
  11. LIPITOR [Concomitant]
     Dates: start: 20040106

REACTIONS (5)
  - BLOOD CHOLESTEROL INCREASED [None]
  - BLOOD TRIGLYCERIDES INCREASED [None]
  - DIABETES MELLITUS [None]
  - DIABETIC COMA [None]
  - OBESITY [None]
